FAERS Safety Report 6853356-4 (Version None)
Quarter: 2010Q3

REPORT INFORMATION
  Report Type: 
  Country: None (occurrence: None)
  Receive Date: 20100717
  Receipt Date: 20071206
  Transmission Date: 20110219
  Serious: No
  Sender: FDA-Public Use
  Company Number: US-PFIZER INC-2007104017

PATIENT
  Sex: Male
  Weight: 128.6 kg

DRUGS (5)
  1. CHANTIX [Suspect]
     Indication: SMOKING CESSATION THERAPY
     Dates: start: 20070201, end: 20070901
  2. NORVASC [Concomitant]
  3. VALSARTAN [Concomitant]
  4. PRILOSEC [Concomitant]
  5. CLARITIN [Concomitant]

REACTIONS (2)
  - ABDOMINAL DISTENSION [None]
  - CONSTIPATION [None]
